FAERS Safety Report 15603761 (Version 2)
Quarter: 2018Q4

REPORT INFORMATION
  Report Type: Spontaneous
  Country: US (occurrence: US)
  Receive Date: 20181109
  Receipt Date: 20181129
  Transmission Date: 20190205
  Serious: No
  Sender: FDA-Public Use
  Company Number: US-PFIZER INC-2018461678

PATIENT
  Age: 40 Year
  Sex: Female

DRUGS (1)
  1. AZITHROMYCIN ANHYDROUS. [Suspect]
     Active Substance: AZITHROMYCIN ANHYDROUS
     Dosage: UNK

REACTIONS (1)
  - Drug hypersensitivity [Unknown]
